FAERS Safety Report 9690564 (Version 2)
Quarter: 2013Q4

REPORT INFORMATION
  Report Type: Report from Study
  Country: CL (occurrence: CL)
  Receive Date: 20131115
  Receipt Date: 20131122
  Transmission Date: 20140711
  Serious: Yes (Hospitalization)
  Sender: FDA-Public Use
  Company Number: PHHY2013CL130603

PATIENT
  Age: 35 Year
  Sex: Male

DRUGS (2)
  1. LEPONEX [Suspect]
     Indication: SCHIZOPHRENIA
     Dosage: 200 MG, UNK
     Route: 048
     Dates: start: 2008, end: 201305
  2. LEPONEX [Suspect]
     Dosage: 25 MG, BID
     Route: 048
     Dates: start: 20131111

REACTIONS (1)
  - General physical health deterioration [Recovering/Resolving]
